FAERS Safety Report 9398161 (Version 1)
Quarter: 2013Q3

REPORT INFORMATION
  Report Type: Spontaneous
  Country: US (occurrence: US)
  Receive Date: 20130712
  Receipt Date: 20130712
  Transmission Date: 20140515
  Serious: No
  Sender: FDA-Public Use
  Company Number: US-GLAXOSMITHKLINE-A0988097A

PATIENT
  Age: 87 Year
  Sex: Female

DRUGS (5)
  1. FLOVENT [Suspect]
     Indication: EMPHYSEMA
     Dosage: 1PUFF TWICE PER DAY
     Route: 055
     Dates: start: 201201
  2. COMBIVENT [Suspect]
  3. SIMVASTATIN [Concomitant]
  4. HYDROCHLOROTHIAZIDE [Concomitant]
  5. CHOLESTEROL REDUCING AGENT [Concomitant]

REACTIONS (1)
  - Increased appetite [Unknown]
